FAERS Safety Report 11607507 (Version 1)
Quarter: 2015Q4

REPORT INFORMATION
  Report Type: Spontaneous
  Country: US (occurrence: US)
  Receive Date: 20151007
  Receipt Date: 20151007
  Transmission Date: 20160304
  Serious: Yes (Hospitalization)
  Sender: FDA-Public Use
  Company Number: US-BAYER-2015-431111

PATIENT
  Age: 93 Year
  Sex: Female
  Weight: 55.78 kg

DRUGS (8)
  1. BAYER LOW DOSE [Suspect]
     Active Substance: ASPIRIN
     Indication: CEREBROVASCULAR ACCIDENT PROPHYLAXIS
     Dosage: 1 DF, QD
     Route: 048
     Dates: start: 1985, end: 2006
  2. BAYER GENUINE ASPIRIN [Suspect]
     Active Substance: ASPIRIN
     Indication: BLOOD PRESSURE MANAGEMENT
  3. BAYER LOW DOSE [Suspect]
     Active Substance: ASPIRIN
     Indication: CEREBROVASCULAR ACCIDENT PROPHYLAXIS
     Dosage: 2 DF, QD
     Dates: start: 2006
  4. ONE A DAY WOMENS VITACRAVES GUMMIES [Suspect]
     Active Substance: MINERALS\VITAMINS
     Indication: VITAMIN SUPPLEMENTATION
     Dosage: 3 DF, / DAY
  5. LISINOPRIL. [Concomitant]
     Active Substance: LISINOPRIL
  6. METOPROLOL [Concomitant]
     Active Substance: METOPROLOL
  7. XANAX [Concomitant]
     Active Substance: ALPRAZOLAM
  8. ONE A DAY WOMENS VITACRAVES GUMMIES [Suspect]
     Active Substance: MINERALS\VITAMINS
     Indication: VITAMIN SUPPLEMENTATION
     Dosage: 2 DF, QD
     Route: 048
     Dates: start: 2015

REACTIONS (4)
  - Cerebrovascular accident [Recovered/Resolved]
  - Product use issue [None]
  - Wrong technique in product usage process [None]
  - Off label use [None]

NARRATIVE: CASE EVENT DATE: 2000
